FAERS Safety Report 13573722 (Version 1)
Quarter: 2017Q2

REPORT INFORMATION
  Report Type: Spontaneous
  Country: US (occurrence: US)
  Receive Date: 20170523
  Receipt Date: 20170523
  Transmission Date: 20170830
  Serious: Yes (Other)
  Sender: FDA-Public Use
  Company Number: US-BAYER-2017-092462

PATIENT
  Age: 77 Year
  Sex: Female

DRUGS (1)
  1. STIVARGA [Suspect]
     Active Substance: REGORAFENIB
     Indication: COLON NEOPLASM
     Dosage: 3 WEEKS ON AND ONE WEEK OFF
     Dates: start: 201702

REACTIONS (5)
  - Oral pain [None]
  - Fatigue [None]
  - Eating disorder [None]
  - Hypertension [None]
  - Feeling abnormal [None]
